FAERS Safety Report 9988721 (Version 2)
Quarter: 2013Q4

REPORT INFORMATION
  Report Type: Spontaneous
  Country: US (occurrence: None)
  Receive Date: 20131003
  Receipt Date: 20131101
  Transmission Date: 20140711
  Serious: Yes (Other)
  Sender: FDA-Public Use
  Company Number: ADR-2013-01220

PATIENT
  Age: 64 Year
  Sex: Female

DRUGS (16)
  1. LIORESAL [Suspect]
     Indication: PAIN
     Dosage: 127.93 MCG/DAY
     Route: 037
  2. MORPHINE [Suspect]
     Indication: PAIN
  3. BACLOFEN [Suspect]
     Route: 048
  4. AMITIZA 24MCG CAPSULE [Concomitant]
  5. CYMBALTA 60MG [Concomitant]
  6. DILAUDID 4MG [Concomitant]
  7. DOCUSATE SODIUM 250MG [Concomitant]
  8. FOLIC ACID [Concomitant]
  9. LASIX 40MG [Concomitant]
  10. MORPHINE SULFATE 15MG [Concomitant]
  11. NEXIUM 40MG ASTRA ZENECA [Concomitant]
  12. POTASSIUM [Concomitant]
  13. SOMA 350MG [Concomitant]
  14. TRAZODONE HCL [Concomitant]
  15. VALIUM 10MG/2ML [Concomitant]
  16. WARFARIN SODIUM 2.5MG [Concomitant]

REACTIONS (7)
  - Bone abscess [None]
  - Somnolence [None]
  - Fall [None]
  - Injury [None]
  - Rib fracture [None]
  - Arthropathy [None]
  - Personality change [None]
